FAERS Safety Report 6144078-6 (Version None)
Quarter: 2009Q2

REPORT INFORMATION
  Report Type: 
  Country: None (occurrence: None)
  Receive Date: 20090406
  Receipt Date: 20090326
  Transmission Date: 20091009
  Serious: Yes (Death, Other)
  Sender: FDA-Public Use
  Company Number: CA-JNJFOC-20081005677

PATIENT
  Sex: Female

DRUGS (2)
  1. REMICADE [Suspect]
     Indication: SARCOIDOSIS
  2. STEROID NOS [Suspect]
     Indication: DRUG USE FOR UNKNOWN INDICATION

REACTIONS (2)
  - HIP ARTHROPLASTY [None]
  - OSTEONECROSIS [None]
